FAERS Safety Report 19417010 (Version 1)
Quarter: 2021Q2

REPORT INFORMATION
  Report Type: Spontaneous
  Country: US (occurrence: US)
  Receive Date: 20210614
  Receipt Date: 20210614
  Transmission Date: 20210717
  Serious: No
  Sender: FDA-Public Use
  Company Number: None

PATIENT
  Age: 48 Year
  Sex: Male

DRUGS (1)
  1. IODIXANOL (IODIXANOL 320MGI/ML INJ) [Suspect]
     Active Substance: IODIXANOL
     Indication: CARDIOVASCULAR DISORDER
     Dosage: ?          OTHER ROUTE:IV?
     Route: 042
     Dates: start: 20210604, end: 20210604

REACTIONS (4)
  - Chest pain [None]
  - Leukocytosis [None]
  - Rash maculo-papular [None]
  - Rash pruritic [None]

NARRATIVE: CASE EVENT DATE: 20210606
